FAERS Safety Report 5409598-8 (Version None)
Quarter: 2007Q3

REPORT INFORMATION
  Report Type: 
  Country: None (occurrence: None)
  Receive Date: 20070807
  Receipt Date: 20070807
  Transmission Date: 20080115
  Serious: Yes (Hospitalization)
  Sender: FDA-Public Use
  Company Number: None

PATIENT
  Age: 43 Year
  Sex: Male
  Weight: 77.1115 kg

DRUGS (2)
  1. IRON DEXTRAN [Suspect]
     Indication: MICROCYTIC ANAEMIA
     Dosage: 1000MG ONCE IV
     Route: 042
     Dates: start: 20070713, end: 20070713
  2. OMEPRAZOLE [Concomitant]

REACTIONS (10)
  - CARDIO-RESPIRATORY ARREST [None]
  - CHEST DISCOMFORT [None]
  - COLD SWEAT [None]
  - HYPOTENSION [None]
  - INFUSION RELATED REACTION [None]
  - NERVOUSNESS [None]
  - PRURITUS [None]
  - SOMNOLENCE [None]
  - UNRESPONSIVE TO STIMULI [None]
  - URTICARIA [None]
